FAERS Safety Report 12442949 (Version 1)
Quarter: 2016Q2

REPORT INFORMATION
  Report Type: Spontaneous
  Country: US (occurrence: US)
  Receive Date: 20160607
  Receipt Date: 20160607
  Transmission Date: 20160815
  Serious: No
  Sender: FDA-Public Use
  Company Number: US-ACTAVIS-2015-14581

PATIENT
  Age: 54 Year
  Sex: Male
  Weight: 91 kg

DRUGS (6)
  1. OMEPRAZOLE (ACTAVIS LABORATORIES FL) [Suspect]
     Active Substance: OMEPRAZOLE
     Indication: GASTROOESOPHAGEAL REFLUX DISEASE
  2. PREDNISONE. [Concomitant]
     Active Substance: PREDNISONE
     Dosage: 2.5 MG, QAM
  3. CENTRUM SILVER ADULTS 50+ [Concomitant]
     Active Substance: MINERALS\VITAMINS
     Indication: SUPPLEMENTATION THERAPY
     Dosage: UNK, DAILY
  4. OMEPRAZOLE (ACTAVIS LABORATORIES FL) [Suspect]
     Active Substance: OMEPRAZOLE
     Indication: OESOPHAGEAL PAIN
     Dosage: 40 MG, DAILY
     Route: 048
  5. LYRICA [Concomitant]
     Active Substance: PREGABALIN
     Indication: PAIN
     Dosage: 150 MG, BID
  6. OXYCODONE AND ACETAMINOPHEN [Concomitant]
     Active Substance: ACETAMINOPHEN\OXYCODONE HYDROCHLORIDE
     Indication: BACK PAIN
     Dosage: UNK MG, PRN

REACTIONS (1)
  - Drug ineffective [Unknown]
